FAERS Safety Report 9945856 (Version 1)
Quarter: 2014Q1

REPORT INFORMATION
  Report Type: Spontaneous
  Country: US (occurrence: US)
  Receive Date: 20140303
  Receipt Date: 20140303
  Transmission Date: 20141002
  Serious: No
  Sender: FDA-Public Use
  Company Number: US-AMGEN-USASP2013071546

PATIENT
  Age: 63 Year
  Sex: Female
  Weight: 90.7 kg

DRUGS (2)
  1. ENBREL [Suspect]
     Indication: PSORIATIC ARTHROPATHY
     Dosage: 50 MG, UNK
     Route: 058
     Dates: end: 201212
  2. ENBREL [Suspect]
     Indication: PSORIASIS

REACTIONS (2)
  - Therapeutic response decreased [Unknown]
  - Inflammation [Unknown]
